FAERS Safety Report 7465594-0 (Version None)
Quarter: 2011Q2

REPORT INFORMATION
  Report Type: 
  Country: None (occurrence: None)
  Receive Date: 20110509
  Receipt Date: 20110502
  Transmission Date: 20111010
  Serious: Yes (Other)
  Sender: FDA-Public Use
  Company Number: US-SANOFI-AVENTIS-2011SA027290

PATIENT
  Sex: Male

DRUGS (3)
  1. DABIGATRAN ETEXILATE [Concomitant]
     Dates: start: 20110301
  2. CRESTOR [Concomitant]
  3. MULTAQ [Suspect]
     Indication: ATRIAL FIBRILLATION
     Dosage: TAKEN WITH FOOD
     Route: 048
     Dates: start: 20110301

REACTIONS (2)
  - ATRIAL FIBRILLATION [None]
  - HEART RATE INCREASED [None]
